FAERS Safety Report 6219651-7 (Version None)
Quarter: 2009Q2

REPORT INFORMATION
  Report Type: 
  Country: None (occurrence: None)
  Receive Date: 20090609
  Receipt Date: 20090603
  Transmission Date: 20091009
  Serious: Yes (Death)
  Sender: FDA-Public Use
  Company Number: JP-BAYER-200911848BYL

PATIENT
  Age: 79 Year
  Sex: Male

DRUGS (3)
  1. CIPROXAN-I.V. [Suspect]
     Indication: PNEUMONIA
     Dosage: TOTAL DAILY DOSE: 600 MG
     Route: 041
     Dates: start: 20090528, end: 20090528
  2. MEROPEN [Suspect]
     Indication: PNEUMONIA
     Route: 041
     Dates: start: 20090516, end: 20090525
  3. ZOSYN [Suspect]
     Indication: PNEUMONIA
     Route: 041
     Dates: start: 20090512, end: 20090515

REACTIONS (1)
  - HAEMOLYTIC ANAEMIA [None]
